FAERS Safety Report 5908790-3 (Version None)
Quarter: 2008Q4

REPORT INFORMATION
  Report Type: 
  Country: None (occurrence: None)
  Receive Date: 20081006
  Receipt Date: 20080925
  Transmission Date: 20090506
  Serious: Yes (Other)
  Sender: FDA-Public Use
  Company Number: PHHY2008BR09230

PATIENT
  Age: 38 Year
  Sex: Female

DRUGS (3)
  1. VISKEN [Suspect]
     Indication: HYPERTENSION
     Dosage: 10 MG
     Route: 048
  2. HYDROCHLOROTHIAZIDE [Concomitant]
     Indication: HYPERTENSION
     Dosage: 25 MG/DAY
  3. METHYLDOPA [Concomitant]
     Indication: HYPERTENSION
     Dosage: 250 MG, BID

REACTIONS (2)
  - CAESAREAN SECTION [None]
  - DRUG EXPOSURE DURING PREGNANCY [None]
